FAERS Safety Report 9156369 (Version 3)
Quarter: 2013Q2

REPORT INFORMATION
  Report Type: Spontaneous
  Country: US (occurrence: US)
  Receive Date: 20130312
  Receipt Date: 20130418
  Transmission Date: 20140414
  Serious: Yes (Hospitalization)
  Sender: FDA-Public Use
  Company Number: US-BIOGENIDEC-2013BI021736

PATIENT
  Age: 59 Year
  Sex: Male

DRUGS (1)
  1. AVONEX [Suspect]
     Indication: MULTIPLE SCLEROSIS
     Route: 030
     Dates: start: 20060210

REACTIONS (5)
  - Myocardial infarction [Recovered/Resolved]
  - Spondylitic myelopathy [Recovered/Resolved]
  - Bone cyst [Not Recovered/Not Resolved]
  - Post procedural complication [Not Recovered/Not Resolved]
  - Musculoskeletal pain [Not Recovered/Not Resolved]
